FAERS Safety Report 6672626-6 (Version None)
Quarter: 2010Q2

REPORT INFORMATION
  Report Type: 
  Country: None (occurrence: None)
  Receive Date: 20100406
  Receipt Date: 20100322
  Transmission Date: 20101027
  Serious: Yes (Other)
  Sender: FDA-Public Use
  Company Number: 20100131

PATIENT
  Age: 45 Year
  Sex: Male

DRUGS (9)
  1. PHENYLEPHRINE HCL INJECTION, [Suspect]
     Indication: BLOOD PRESSURE
  2. LEVOFLOXACIN [Concomitant]
  3. QUINUOPRISTIN/DALFOPRISTIN [Concomitant]
  4. PROPOFOL [Concomitant]
  5. HEPARIN [Concomitant]
  6. ELECTOLYTE SUPPLEMENTATION [Concomitant]
  7. HYDROXYZINE [Concomitant]
  8. METOPROLOL TARTRATE [Concomitant]
  9. MIDAZOLAM HCL [Concomitant]

REACTIONS (6)
  - PLATELET COUNT DECREASED [None]
  - POST PROCEDURAL COMPLICATION [None]
  - PURPURA [None]
  - SPINAL OSTEOARTHRITIS [None]
  - THROMBOSIS [None]
  - VASCULAR OCCLUSION [None]
